FAERS Safety Report 5317876-6 (Version None)
Quarter: 2007Q2

REPORT INFORMATION
  Report Type: 
  Country: None (occurrence: None)
  Receive Date: 20070430
  Receipt Date: 20070424
  Transmission Date: 20071010
  Serious: Yes (Other)
  Sender: FDA-Public Use
  Company Number: 0704-305

PATIENT
  Age: 20 Year
  Sex: Female

DRUGS (1)
  1. ALBUTEROL SULATE [Suspect]

REACTIONS (10)
  - BLOOD PH DECREASED [None]
  - BLOOD PRESSURE INCREASED [None]
  - BRONCHOSPASM [None]
  - COMA [None]
  - CYANOSIS [None]
  - HAEMOGLOBIN DECREASED [None]
  - PALLOR [None]
  - PCO2 DECREASED [None]
  - PERIPHERAL COLDNESS [None]
  - PO2 DECREASED [None]
